FAERS Safety Report 14202611 (Version 1)
Quarter: 2017Q4

REPORT INFORMATION
  Report Type: Spontaneous
  Country: US (occurrence: US)
  Receive Date: 20171118
  Receipt Date: 20171118
  Transmission Date: 20180321
  Serious: Yes (Other)
  Sender: FDA-Public Use
  Company Number: US-ACCORD-059150

PATIENT
  Age: 50 Year
  Sex: Female
  Weight: 66.68 kg

DRUGS (4)
  1. CAPECITABINE NORTHSTAR [Suspect]
     Active Substance: CAPECITABINE
     Indication: BREAST CANCER METASTATIC
     Dosage: 2000MG DAILY FOR 1 WEEK THEN 1500MG DAILY FOR 1 WEEK AND THEN 1 WEEK OFF AND REPEATS THE CYCLE.
     Route: 048
     Dates: start: 20170119
  2. OXYCODONE/PARACETAMOL [Concomitant]
  3. MORPHINE [Concomitant]
     Active Substance: MORPHINE
  4. BUPROPION/BUPROPION HYDROCHLORIDE [Concomitant]

REACTIONS (2)
  - Dehydration [Not Recovered/Not Resolved]
  - Red blood cell count decreased [Unknown]

NARRATIVE: CASE EVENT DATE: 20170119
